FAERS Safety Report 9565240 (Version 6)
Quarter: 2014Q2

REPORT INFORMATION
  Report Type: Spontaneous
  Country: US (occurrence: US)
  Receive Date: 20130930
  Receipt Date: 20140414
  Transmission Date: 20141212
  Serious: Yes (Hospitalization, Other)
  Sender: FDA-Public Use
  Company Number: US-009507513-1201USA00244

PATIENT
  Sex: Female
  Weight: 70.75 kg

DRUGS (7)
  1. FOSAMAX [Suspect]
     Indication: OSTEOPOROSIS
     Dosage: 10 MG, UNK
     Route: 048
     Dates: start: 199704, end: 200106
  2. FOSAMAX [Suspect]
     Dosage: 70 MG, UNK
     Route: 048
     Dates: start: 200007, end: 200510
  3. ALENDRONATE SODIUM [Suspect]
     Indication: OSTEOPOROSIS
     Dosage: 70 MG, QW
     Route: 048
     Dates: start: 200808, end: 2010
  4. CALCIUM (UNSPECIFIED) [Concomitant]
     Indication: OSTEOPOROSIS
     Dosage: 1200 MG, UNK
  5. VITAMIN D (UNSPECIFIED) [Concomitant]
     Indication: OSTEOPOROSIS
     Dosage: 1800 MG, UNK
     Dates: start: 2007
  6. PREMPRO [Concomitant]
     Dosage: UNK
     Dates: start: 1997, end: 200208
  7. MAGNESIUM (UNSPECIFIED) [Concomitant]
     Dosage: 500 MG, QD

REACTIONS (23)
  - Femur fracture [Unknown]
  - Wrist fracture [Unknown]
  - Open reduction of fracture [Unknown]
  - Open reduction of fracture [Unknown]
  - Breast cancer [Unknown]
  - Femur fracture [Unknown]
  - Hypothyroidism [Unknown]
  - Vitamin D deficiency [Unknown]
  - Glaucoma [Unknown]
  - Adverse event [Unknown]
  - Wrist fracture [Unknown]
  - Wrist fracture [Unknown]
  - Uterine dilation and curettage [Unknown]
  - Biopsy breast [Unknown]
  - Impaired healing [Unknown]
  - Osteopenia [Unknown]
  - Osteoarthritis [Unknown]
  - Radiotherapy [Unknown]
  - Hypercholesterolaemia [Unknown]
  - Adhesion [Unknown]
  - Scar excision [Unknown]
  - Wrist fracture [Recovered/Resolved]
  - Nausea [Recovered/Resolved]
